FAERS Safety Report 5832377-4 (Version None)
Quarter: 2008Q3

REPORT INFORMATION
  Report Type: 
  Country: None (occurrence: None)
  Receive Date: 20080804
  Receipt Date: 20080723
  Transmission Date: 20090109
  Serious: Yes (Hospitalization, Disabling, Other)
  Sender: FDA-Public Use
  Company Number: US-MERCK-0705USA01555

PATIENT
  Age: 74 Year
  Sex: Female
  Weight: 62 kg

DRUGS (5)
  1. FOSAMAX [Suspect]
     Indication: OSTEOPOROSIS
     Route: 048
     Dates: start: 20020204, end: 20030606
  2. FOSAMAX [Suspect]
     Route: 048
     Dates: start: 19970601, end: 20000306
  3. FOSAMAX [Suspect]
     Route: 048
     Dates: start: 20010315, end: 20011115
  4. FOSAMAX [Suspect]
     Route: 048
     Dates: start: 20040101, end: 20060101
  5. [THERAPY UNSPECIFIED] [Concomitant]
     Indication: HYPERTENSION
     Route: 065
     Dates: start: 19980101

REACTIONS (35)
  - ANXIETY [None]
  - BLINDNESS UNILATERAL [None]
  - CATARACT [None]
  - CERUMEN IMPACTION [None]
  - CHEST PAIN [None]
  - CONTUSION [None]
  - COUGH [None]
  - DEHYDRATION [None]
  - DEPRESSION [None]
  - DERMATITIS ALLERGIC [None]
  - DYSPEPSIA [None]
  - EYE DISORDER [None]
  - FACIAL PAIN [None]
  - FALL [None]
  - GASTRITIS [None]
  - GASTROOESOPHAGEAL REFLUX DISEASE [None]
  - GLAUCOMA [None]
  - HYPERLIPIDAEMIA [None]
  - HYPERSENSITIVITY [None]
  - JOINT SWELLING [None]
  - MALIGNANT HYPERTENSION [None]
  - OEDEMA PERIPHERAL [None]
  - OSTEONECROSIS [None]
  - OTITIS MEDIA ACUTE [None]
  - PAIN IN EXTREMITY [None]
  - PELVIC FRACTURE [None]
  - PHARYNGITIS [None]
  - PRURITUS [None]
  - RENAL VEIN OCCLUSION [None]
  - RHINITIS ALLERGIC [None]
  - SINUSITIS [None]
  - STOMACH DISCOMFORT [None]
  - TEMPOROMANDIBULAR JOINT SYNDROME [None]
  - URINARY TRACT INFECTION [None]
  - URTICARIA [None]
